FAERS Safety Report 13890649 (Version 1)
Quarter: 2017Q3

REPORT INFORMATION
  Report Type: Spontaneous
  Country: GB (occurrence: ES)
  Receive Date: 20170822
  Receipt Date: 20170822
  Transmission Date: 20171127
  Serious: Yes (Other)
  Sender: FDA-Public Use
  Company Number: GB-LPDUSPRD-20171134

PATIENT
  Age: 35 Year
  Sex: Female

DRUGS (28)
  1. FERINJECT [Suspect]
     Active Substance: FERRIC CARBOXYMALTOSE
     Dosage: 1000 MG
     Route: 041
     Dates: start: 20170705, end: 20170705
  2. LORATIDINE [Concomitant]
     Active Substance: LORATADINE
     Dosage: 10 MG OD
     Route: 048
     Dates: start: 20170614
  3. RANITIDINE. [Concomitant]
     Active Substance: RANITIDINE
     Dosage: 300 MG OD
     Route: 065
  4. CHLORPHENAMINE [Concomitant]
     Active Substance: CHLORPHENIRAMINE MALEATE
     Dosage: UNKNOWN
     Route: 042
  5. CREON [Concomitant]
     Active Substance: PANCRELIPASE AMYLASE\PANCRELIPASE LIPASE\PANCRELIPASE PROTEASE
     Dosage: UNKNOWN
     Route: 048
  6. DORNASE ALFA. [Concomitant]
     Active Substance: DORNASE ALFA
     Dosage: 2.5 MG BID
     Route: 065
  7. LACTULOSE. [Concomitant]
     Active Substance: LACTULOSE
     Dosage: 20 ML,2 IN 1 D
     Route: 048
  8. FLUTICASONE PROPIONATE. [Concomitant]
     Active Substance: FLUTICASONE PROPIONATE
     Dosage: 1 DOSAGE FORMS,2 IN 1 D
     Route: 045
  9. GAVISCON ADVANCE [Concomitant]
     Active Substance: POTASSIUM BICARBONATE\SODIUM ALGINATE
     Dosage: 10 ML,3 IN 1 D
     Route: 048
     Dates: start: 20170518
  10. LANSOPRAZOLE. [Concomitant]
     Active Substance: LANSOPRAZOLE
     Dosage: 30 MG BID
     Route: 048
  11. VITAMIN NOS [Concomitant]
     Dosage: 3 DOSAGE FORMS,1 IN 1 D
     Route: 048
  12. ADCAL D3 [Concomitant]
     Active Substance: CALCIUM CARBONATE\CHOLECALCIFEROL
     Dosage: 1 IN 1
     Route: 048
  13. PHYTOMENADIONE [Concomitant]
     Active Substance: PHYTONADIONE
     Dosage: 10 MG,1 IN 1 D
     Route: 048
  14. SALMETEROL [Concomitant]
     Active Substance: SALMETEROL
     Dosage: 1 DOSAGE FORMS,2 IN 1 D
     Route: 045
  15. TOBI [Concomitant]
     Active Substance: TOBRAMYCIN
     Dosage: 300 MG BID
     Route: 065
     Dates: start: 20170110
  16. TOBRAMYCIN. [Concomitant]
     Active Substance: TOBRAMYCIN
     Dosage: 400 MG OD
     Route: 040
     Dates: start: 20170704
  17. CO-AMOXYCLAV [Concomitant]
     Dosage: 625 MG,3 IN 1 D
     Route: 048
     Dates: start: 20170623
  18. MOMETASONE [Concomitant]
     Active Substance: MOMETASONE
     Dosage: 200 DOSAGE FORMS,1 IN 1 D
     Route: 045
     Dates: start: 20170526
  19. NEFOPAM [Concomitant]
     Active Substance: NEFOPAM
     Dosage: 180 MG (60 MG,3 IN 1 D)
     Route: 048
  20. THIAMINE. [Concomitant]
     Active Substance: THIAMINE
     Dosage: 100 MG OD
     Route: 048
  21. VITAMIN B COMPLEX [Concomitant]
     Active Substance: CYANOCOBALAMIN\DEXPANTHENOL\NIACINAMIDE\PYRIDOXINE HYDROCHLORIDE\RIBOFLAVIN 5^-PHOSPHATE SODIUM\THIAMINE HYDROCHLORIDE\VITAMIN B COMPLEX
     Dosage: OD-1 DOSAGE FORM
     Route: 065
  22. DOCUSATE [Concomitant]
     Active Substance: DOCUSATE
     Dosage: 100 BID
     Route: 048
  23. AZTREONAM. [Concomitant]
     Active Substance: AZTREONAM
     Dosage: 2 GM,3 IN 1 D
     Route: 042
     Dates: start: 20170704
  24. CLOTRIMAZOLE. [Concomitant]
     Active Substance: CLOTRIMAZOLE
     Dosage: 1 DOSAGE FORMS,3 IN 1 D
     Route: 061
     Dates: start: 20170623
  25. FLUCONAZOLE. [Concomitant]
     Active Substance: FLUCONAZOLE
     Dosage: 50 MG OD
     Route: 048
     Dates: start: 20170623
  26. RESOLOR [Concomitant]
     Active Substance: PRUCALOPRIDE SUCCINATE
     Dosage: 2 MG OD
     Route: 048
     Dates: start: 20170606
  27. TOCOPHEROL, VITAMIN E SUBSTANCE [Concomitant]
     Dosage: 400 IU OD
     Route: 048
  28. AZITHROMYCIN ANHYDROUS. [Concomitant]
     Active Substance: AZITHROMYCIN ANHYDROUS
     Dosage: 250 MG,1 IN 1 D
     Route: 048

REACTIONS (3)
  - Chest discomfort [Unknown]
  - Paraesthesia [Unknown]
  - Rash erythematous [Unknown]

NARRATIVE: CASE EVENT DATE: 20170705
